FAERS Safety Report 5060957-5 (Version None)
Quarter: 2006Q3

REPORT INFORMATION
  Report Type: 
  Country: None (occurrence: None)
  Receive Date: 20060720
  Receipt Date: 20060703
  Transmission Date: 20061208
  Serious: Yes (Death, Hospitalization, Other)
  Sender: FDA-Public Use
  Company Number: 200613925BWH

PATIENT
  Age: 85 Year
  Sex: Male

DRUGS (2)
  1. NEXAVAR [Suspect]
     Indication: RETROPERITONEAL CANCER
     Dosage: 400 MG BID ORAL
     Route: 048
     Dates: start: 20060510, end: 20060522
  2. NEXAVAR [Suspect]
     Indication: SARCOMA
     Dosage: 400 MG BID ORAL
     Route: 048
     Dates: start: 20060510, end: 20060522

REACTIONS (12)
  - ANOREXIA [None]
  - APHAGIA [None]
  - ASTHENIA [None]
  - BLISTER [None]
  - DEHYDRATION [None]
  - FATIGUE [None]
  - FEELING ABNORMAL [None]
  - MALIGNANT NEOPLASM PROGRESSION [None]
  - RASH GENERALISED [None]
  - RENAL FAILURE [None]
  - SARCOMA [None]
  - STOMATITIS [None]
